FAERS Safety Report 9369941 (Version 1)
Quarter: 2013Q2

REPORT INFORMATION
  Report Type: Spontaneous
  Country: US (occurrence: US)
  Receive Date: 20130626
  Receipt Date: 20130626
  Transmission Date: 20140414
  Serious: Yes (Other)
  Sender: FDA-Public Use
  Company Number: US-ASTRAZENECA-2013SE47022

PATIENT
  Age: 77 Year
  Sex: Female
  Weight: 63 kg

DRUGS (11)
  1. NEXIUM [Suspect]
     Indication: GASTROENTERITIS
     Dosage: AS NEEDED
     Route: 048
  2. NEXIUM [Suspect]
     Indication: GASTROENTERITIS
     Route: 048
     Dates: start: 201105, end: 20130517
  3. IMDUR [Concomitant]
     Route: 048
     Dates: start: 201210
  4. LIPITOR [Concomitant]
     Route: 048
     Dates: start: 201210
  5. DEPAKOTE [Concomitant]
     Indication: CONVULSION
     Route: 048
     Dates: start: 201008
  6. FLEXERIL [Concomitant]
     Indication: MUSCLE DISORDER
     Route: 048
     Dates: start: 201008
  7. LANOXIN [Concomitant]
     Route: 048
     Dates: start: 201210
  8. METOPROLOL [Concomitant]
     Route: 048
     Dates: start: 201210
  9. PLAVIX [Concomitant]
     Indication: ANTICOAGULANT THERAPY
     Route: 048
     Dates: start: 201210
  10. NAPROXEN [Concomitant]
     Indication: PAIN
     Route: 048
     Dates: start: 20130521
  11. ASPIRIN [Concomitant]
     Indication: CARDIOVASCULAR DISORDER
     Route: 048
     Dates: start: 201210

REACTIONS (10)
  - Road traffic accident [Recovering/Resolving]
  - Spinal column injury [Recovered/Resolved]
  - Heart rate irregular [Recovered/Resolved]
  - Osteomyelitis [Recovered/Resolved]
  - Weight decreased [Not Recovered/Not Resolved]
  - Musculoskeletal pain [Recovered/Resolved]
  - Abdominal pain upper [Not Recovered/Not Resolved]
  - Off label use [Unknown]
  - Intentional drug misuse [Unknown]
  - Intentional drug misuse [Unknown]
